FAERS Safety Report 9781102 (Version 1)
Quarter: 2013Q4

REPORT INFORMATION
  Report Type: Spontaneous
  Country: US (occurrence: None)
  Receive Date: 20131223
  Receipt Date: 20131223
  Transmission Date: 20140711
  Serious: Yes (Disabling)
  Sender: FDA-Public Use
  Company Number: None

PATIENT
  Age: 49 Year
  Sex: Male
  Weight: 95.26 kg

DRUGS (1)
  1. CIPROFLAXIN [Suspect]
     Indication: URINARY TRACT INFECTION
     Dosage: 2 PILLS TWICE DAILY TAKEN BY MOUTH
     Route: 048
     Dates: start: 20131212, end: 20131218

REACTIONS (3)
  - Pain in extremity [None]
  - Pain in extremity [None]
  - Pain [None]
